FAERS Safety Report 9363503 (Version 1)
Quarter: 2013Q2

REPORT INFORMATION
  Report Type: Spontaneous
  Country: US (occurrence: US)
  Receive Date: 20130624
  Receipt Date: 20130624
  Transmission Date: 20140414
  Serious: Yes (Other)
  Sender: FDA-Public Use
  Company Number: US-BAYER-2013-074233

PATIENT
  Age: 52 Year
  Sex: Male

DRUGS (1)
  1. NAPROXEN SODIUM ({= 220 MG) [Suspect]
     Dosage: 220 MG, ONCE
     Route: 048

REACTIONS (4)
  - Allergy to chemicals [Recovered/Resolved]
  - Pruritus [Recovered/Resolved]
  - Dyspnoea [Recovered/Resolved]
  - Urticaria [Recovered/Resolved]
